FAERS Safety Report 6398509-7 (Version None)
Quarter: 2009Q4

REPORT INFORMATION
  Report Type: 
  Country: None (occurrence: None)
  Receive Date: 20091013
  Receipt Date: 20091005
  Transmission Date: 20100525
  Serious: Yes (Other)
  Sender: FDA-Public Use
  Company Number: US-PFIZER INC-2009279164

PATIENT
  Sex: Female
  Weight: 97.1 kg

DRUGS (6)
  1. PROVERA [Suspect]
     Indication: HORMONE REPLACEMENT THERAPY
     Dosage: 2.5-10 MG
     Route: 048
     Dates: start: 19960101, end: 19980101
  2. MEDROXYPROGESTERONE AND MEDROXYPROGESTERONE ACETATE [Suspect]
     Indication: HORMONE REPLACEMENT THERAPY
     Dosage: UNK
     Route: 048
     Dates: start: 19960101, end: 19980101
  3. PREMARIN [Suspect]
     Indication: HORMONE REPLACEMENT THERAPY
     Dosage: UNK
     Dates: start: 19960101, end: 19980101
  4. PREMPRO [Suspect]
     Indication: HORMONE REPLACEMENT THERAPY
     Dosage: UNK
     Dates: start: 19980101, end: 20000101
  5. IMIPRAMINE [Concomitant]
     Indication: INSOMNIA
     Dosage: UNK
     Dates: start: 19930101
  6. TENORMIN [Concomitant]
     Indication: BLOOD PRESSURE
     Dosage: UNK
     Dates: start: 19990215

REACTIONS (1)
  - BREAST CANCER [None]
